FAERS Safety Report 5968399-2 (Version None)
Quarter: 2008Q4

REPORT INFORMATION
  Report Type: 
  Country: None (occurrence: None)
  Receive Date: 20081121
  Receipt Date: 20081121
  Transmission Date: 20090506
  Serious: Yes (Death)
  Sender: FDA-Public Use
  Company Number: None

PATIENT
  Age: 70 Year
  Sex: Female

DRUGS (1)
  1. IFOSFAMIDE [Suspect]
     Indication: UTERINE CANCER
     Dosage: 3.2 GRAM IV
     Route: 042
     Dates: start: 20081012, end: 20081012

REACTIONS (6)
  - ACUTE MYOCARDIAL INFARCTION [None]
  - BUNDLE BRANCH BLOCK RIGHT [None]
  - HYPERKALAEMIA [None]
  - PERICARDITIS [None]
  - REFUSAL OF TREATMENT BY PATIENT [None]
  - SINUS TACHYCARDIA [None]
